FAERS Safety Report 14277073 (Version 1)
Quarter: 2017Q4

REPORT INFORMATION
  Report Type: Spontaneous
  Country: US (occurrence: US)
  Receive Date: 20171212
  Receipt Date: 20171212
  Transmission Date: 20180321
  Serious: Yes (Other)
  Sender: FDA-Public Use
  Company Number: US-ASTRAZENECA-2017SF23489

PATIENT
  Sex: Female

DRUGS (27)
  1. ZOMETA [Concomitant]
     Active Substance: ZOLEDRONIC ACID
     Indication: BREAST CANCER FEMALE
     Dosage: 4MG, Q 28DX 6 CYCLES
     Dates: start: 20120409, end: 20120528
  2. TAXOL [Concomitant]
     Active Substance: PACLITAXEL
     Indication: BREAST CANCER FEMALE
     Dosage: 80MG/M2 3 WKS ON 1 WK OFF/X 6 CYCLES
     Dates: start: 20130211, end: 20140828
  3. IXEMPRA [Concomitant]
     Active Substance: IXABEPILONE
     Indication: BREAST CANCER FEMALE
     Dosage: 40 MG/M2, D 1, 21 DX 6 CYCLES
     Dates: start: 20161031, end: 20170526
  4. LEVOTHYROXINE. [Concomitant]
     Active Substance: LEVOTHYROXINE
     Dates: start: 20110214
  5. RISPERIDONE. [Concomitant]
     Active Substance: RISPERIDONE
     Dates: start: 20110214
  6. GEMZAR [Concomitant]
     Active Substance: GEMCITABINE HYDROCHLORIDE
     Indication: BREAST CANCER FEMALE
     Dosage: 1250 MG/M2  1D, 8 AND 15 Q 28 DX 6 CYCLES
     Dates: start: 20151116, end: 20160202
  7. ASPIRIN. [Concomitant]
     Active Substance: ASPIRIN
     Route: 048
     Dates: start: 20160418
  8. ZANTAC [Concomitant]
     Active Substance: RANITIDINE HYDROCHLORIDE
     Route: 048
  9. ZOMETA [Concomitant]
     Active Substance: ZOLEDRONIC ACID
     Indication: BREAST CANCER FEMALE
     Dosage: 4MG, Q 28DX 12 CYCLES
     Dates: start: 20110214, end: 20120413
  10. ZOMETA [Concomitant]
     Active Substance: ZOLEDRONIC ACID
     Indication: BREAST CANCER FEMALE
     Dosage: 4MG, Q 28DX 12 CYCLES
     Dates: start: 20151012, end: 20161003
  11. HALAVEN [Concomitant]
     Active Substance: ERIBULIN MESYLATE
     Indication: BREAST CANCER FEMALE
     Dates: start: 20140827, end: 20151103
  12. HYDROCODONE/ACETAMINOPHEN [Concomitant]
     Active Substance: ACETAMINOPHEN\HYDROCODONE
     Indication: BONE PAIN
     Dosage: 1-2 PO Q 4-6 HOURS PRN
     Route: 048
     Dates: start: 20170508
  13. PENICILLIN V POTASSIUM. [Concomitant]
     Active Substance: PENICILLIN V POTASSIUM
     Route: 048
  14. VALPROIC ACID. [Concomitant]
     Active Substance: VALPROIC ACID
  15. ZOMETA [Concomitant]
     Active Substance: ZOLEDRONIC ACID
     Indication: BREAST CANCER FEMALE
     Dosage: 4MG, Q 28DX 12 CYCLES
     Dates: start: 20160912, end: 20171009
  16. ACTIVASE [Concomitant]
     Active Substance: ALTEPLASE
     Indication: BREAST CANCER FEMALE
     Dosage: CATH FLOW 2 MG SINGLE DOSE VIAL
     Dates: start: 20151116, end: 20151116
  17. GEMZAR [Concomitant]
     Active Substance: GEMCITABINE HYDROCHLORIDE
     Indication: BREAST CANCER FEMALE
     Dosage: 1000 MG/M2  1D, 8 Q 21 DX 8 CYCLES
     Dates: start: 20160111, end: 20160411
  18. CARDIZEM CD [Concomitant]
     Active Substance: DILTIAZEM HYDROCHLORIDE
     Dates: start: 20160418
  19. COMBIVENT RESPIMAT [Concomitant]
     Active Substance: ALBUTEROL SULFATE\IPRATROPIUM BROMIDE
     Dosage: 20 MCG- 100 UG/ ACTUATION SOLUTION FOR LNHALATION
     Dates: start: 20160930
  20. LITHIUM CARBONATE. [Concomitant]
     Active Substance: LITHIUM CARBONATE
     Route: 048
     Dates: start: 20170421
  21. METOPROLOL TARTRATE. [Concomitant]
     Active Substance: METOPROLOL TARTRATE
     Route: 048
     Dates: start: 20160418
  22. ZOMETA [Concomitant]
     Active Substance: ZOLEDRONIC ACID
     Indication: BREAST CANCER FEMALE
     Dosage: 4MG, Q 28DX 3
     Dates: start: 20120709, end: 20140922
  23. FASLODEX [Suspect]
     Active Substance: FULVESTRANT
     Indication: BREAST CANCER FEMALE
     Dosage: 500 MG DAY 1, 15, 29, THEN EVERY  MONTH X 12 CYCLES
     Route: 030
     Dates: start: 20110117, end: 20111031
  24. PRILOSEC OTC [Suspect]
     Active Substance: OMEPRAZOLE MAGNESIUM
     Route: 048
     Dates: start: 20110414
  25. IBRANCE [Suspect]
     Active Substance: PALBOCICLIB
     Indication: BREAST CANCER FEMALE
     Dosage: 1 P.O. Q, DAY 3 WEEKS ON/1 WEEK
     Route: 048
     Dates: start: 20170526
  26. ABRAXANE [Concomitant]
     Active Substance: PACLITAXEL
     Indication: BREAST CANCER FEMALE
     Dosage: 100 MG/M2, D 1, 8,15, Q 28DX 6 CYCLES
     Dates: start: 20160516, end: 20161024
  27. ATIVAN [Concomitant]
     Active Substance: LORAZEPAM
     Dates: start: 20110214

REACTIONS (7)
  - Malignant neoplasm progression [Unknown]
  - Nausea [Unknown]
  - Vomiting [Unknown]
  - Metastases to bone [Unknown]
  - Agranulocytosis [Unknown]
  - Metastases to bone marrow [Unknown]
  - Dehydration [Unknown]

NARRATIVE: CASE EVENT DATE: 20140723
